FAERS Safety Report 18480419 (Version 1)
Quarter: 2020Q4

REPORT INFORMATION
  Report Type: Spontaneous
  Country: US (occurrence: US)
  Receive Date: 20201109
  Receipt Date: 20201109
  Transmission Date: 20210114
  Serious: No
  Sender: FDA-Public Use
  Company Number: None

PATIENT
  Age: 57 Year
  Sex: Female
  Weight: 58.5 kg

DRUGS (6)
  1. CALCIUM [Concomitant]
     Active Substance: CALCIUM
  2. FISH OIL [Concomitant]
     Active Substance: FISH OIL
  3. FLAXSEED [Concomitant]
     Active Substance: FLAX SEED
  4. XIIDRA [Suspect]
     Active Substance: LIFITEGRAST
     Indication: SJOGREN^S SYNDROME
     Dosage: ?          QUANTITY:1 DROP(S);?
     Route: 047
     Dates: start: 20201027, end: 20201104
  5. VIT D [Concomitant]
     Active Substance: VITAMIN D NOS
  6. VITAMIN C [Concomitant]
     Active Substance: ASCORBIC ACID

REACTIONS (2)
  - Eye discharge [None]
  - Vision blurred [None]

NARRATIVE: CASE EVENT DATE: 20201027
